FAERS Safety Report 9776724 (Version 1)
Quarter: 2013Q4

REPORT INFORMATION
  Report Type: Report from Study
  Country: DE (occurrence: DE)
  Receive Date: 20131220
  Receipt Date: 20131220
  Transmission Date: 20140711
  Serious: Yes (Hospitalization)
  Sender: FDA-Public Use
  Company Number: DE-ABBVIE-13P-062-1180218-00

PATIENT
  Age: 51 Year
  Sex: Female

DRUGS (4)
  1. HUMIRA [Suspect]
     Indication: RHEUMATOID ARTHRITIS
     Route: 058
     Dates: start: 200504, end: 20130723
  2. HUMIRA [Suspect]
     Dates: start: 20131001
  3. METHOTREXATE [Suspect]
     Indication: RHEUMATOID ARTHRITIS
     Dates: end: 20130723
  4. METHOTREXATE [Suspect]
     Dates: start: 20130901

REACTIONS (2)
  - Arthropathy [Unknown]
  - Impaired healing [Not Recovered/Not Resolved]
